FAERS Safety Report 25728313 (Version 3)
Quarter: 2025Q3

REPORT INFORMATION
  Report Type: Spontaneous
  Country: US (occurrence: US)
  Receive Date: 20250826
  Receipt Date: 20250915
  Transmission Date: 20251021
  Serious: No
  Sender: VERTEX
  Company Number: US-VERTEX PHARMACEUTICALS-2025-013906

PATIENT
  Age: 27 Year
  Sex: Male

DRUGS (3)
  1. ALYFTREK [Suspect]
     Active Substance: DEUTIVACAFTOR\TEZACAFTOR\VANZACAFTOR
     Indication: Cystic fibrosis
     Dosage: 2 TABLETS (10MG VANZACAFTOR/ 50MG TEZACAFTOR/125MG DEUTIVACAFTOR), QD
     Route: 048
     Dates: start: 20250309, end: 20250815
  2. ALYFTREK [Suspect]
     Active Substance: DEUTIVACAFTOR\TEZACAFTOR\VANZACAFTOR
     Dosage: 1 TABLET (10MG VANZACAFTOR/ 50MG TEZACAFTOR/125MG DEUTIVACAFTOR), QOD (EVERY OTHER DAY)
     Route: 048
     Dates: start: 20250818, end: 2025
  3. ALYFTREK [Suspect]
     Active Substance: DEUTIVACAFTOR\TEZACAFTOR\VANZACAFTOR
     Dosage: 1 TABLET (10MG VANZACAFTOR/ 50MG TEZACAFTOR/125MG DEUTIVACAFTOR), QD
     Route: 048
     Dates: start: 20250901

REACTIONS (5)
  - Flatulence [Recovered/Resolved]
  - Diarrhoea [Recovered/Resolved]
  - Pain [Recovered/Resolved]
  - Insomnia [Recovered/Resolved]
  - Night sweats [Recovered/Resolved]

NARRATIVE: CASE EVENT DATE: 20250401
